FAERS Safety Report 13580027 (Version 1)
Quarter: 2017Q2

REPORT INFORMATION
  Report Type: Spontaneous
  Country: US (occurrence: US)
  Receive Date: 20170524
  Receipt Date: 20170524
  Transmission Date: 20170830
  Serious: No
  Sender: FDA-Public Use
  Company Number: None

PATIENT
  Age: 55 Year
  Sex: Female

DRUGS (10)
  1. DALFAMPRIDINE [Concomitant]
     Active Substance: DALFAMPRIDINE
  2. SUMATRIPTAN. [Concomitant]
     Active Substance: SUMATRIPTAN
  3. AMPYRA [Suspect]
     Active Substance: DALFAMPRIDINE
     Indication: MULTIPLE SCLEROSIS
     Dates: start: 201401, end: 20170424
  4. FLUOXETINE [Concomitant]
     Active Substance: FLUOXETINE HYDROCHLORIDE
  5. BACLOFEN. [Suspect]
     Active Substance: BACLOFEN
  6. PRAMIPEXOLE. [Concomitant]
     Active Substance: PRAMIPEXOLE
  7. CARBIDOPA-LEVODOPA [Concomitant]
     Active Substance: CARBIDOPA\LEVODOPA
  8. CLONEZAPAM [Concomitant]
  9. OXYBUTYNIN [Concomitant]
     Active Substance: OXYBUTYNIN
  10. BUPROPRION [Concomitant]
     Active Substance: BUPROPION

REACTIONS (1)
  - Off label use [None]

NARRATIVE: CASE EVENT DATE: 20170524
